FAERS Safety Report 21073479 (Version 1)
Quarter: 2022Q3

REPORT INFORMATION
  Report Type: Spontaneous
  Country: None (occurrence: US)
  Receive Date: 20220713
  Receipt Date: 20220713
  Transmission Date: 20221027
  Serious: Yes (Other)
  Sender: FDA-Public Use
  Company Number: US-Edgewell Personal Care, LLC-2130805

PATIENT
  Age: 24 Month
  Sex: Male

DRUGS (1)
  1. BANANA BOAT KIDS FREE CLEAR SUNSCREEN SPF 50 [Suspect]
     Active Substance: AVOBENZONE\HOMOSALATE\OCTISALATE\OCTOCRYLENE
     Indication: Prophylaxis against solar radiation
     Route: 061
     Dates: start: 20220625, end: 20220625

REACTIONS (4)
  - Blister [Recovering/Resolving]
  - Sunburn [Recovering/Resolving]
  - Skin irritation [Unknown]
  - Swelling face [Recovering/Resolving]

NARRATIVE: CASE EVENT DATE: 20220625
